FAERS Safety Report 9408658 (Version 3)
Quarter: 2013Q3

REPORT INFORMATION
  Report Type: Spontaneous
  Country: US (occurrence: None)
  Receive Date: 20130716
  Receipt Date: 20130724
  Transmission Date: 20140515
  Serious: Yes (Hospitalization)
  Sender: FDA-Public Use
  Company Number: 2013-1142

PATIENT
  Age: 73 Year
  Sex: Male
  Weight: 49.4 kg

DRUGS (1)
  1. CARFILZOMIB [Suspect]
     Indication: ACUTE MYELOID LEUKAEMIA
     Route: 042
     Dates: start: 20130610

REACTIONS (1)
  - Acute myocardial infarction [None]
